APPROVED DRUG PRODUCT: LORATADINE
Active Ingredient: LORATADINE
Strength: 10MG
Dosage Form/Route: TABLET;ORAL
Application: A211718 | Product #001
Applicant: HETERO LABS LTD UNIT V
Approved: Jul 28, 2023 | RLD: No | RS: No | Type: OTC